FAERS Safety Report 5863714-2 (Version None)
Quarter: 2008Q3

REPORT INFORMATION
  Report Type: 
  Country: None (occurrence: None)
  Receive Date: 20080828
  Receipt Date: 20080821
  Transmission Date: 20090109
  Serious: Yes (Other)
  Sender: FDA-Public Use
  Company Number: US-JNJCH-2008021834

PATIENT
  Age: 60 Year
  Sex: Male
  Weight: 136.1 kg

DRUGS (1)
  1. VISINE-A [Suspect]
     Indication: HYPERSENSITIVITY
     Dosage: TEXT:2 DROPS 3X ONCE
     Route: 047
     Dates: start: 20080801, end: 20080801

REACTIONS (3)
  - APPLICATION SITE BURN [None]
  - PHARMACEUTICAL PRODUCT COMPLAINT [None]
  - PRURITUS [None]
